FAERS Safety Report 6268268-7 (Version None)
Quarter: 2009Q3

REPORT INFORMATION
  Report Type: 
  Country: None (occurrence: None)
  Receive Date: 20090715
  Receipt Date: 20090707
  Transmission Date: 20100115
  Serious: Yes (Other)
  Sender: FDA-Public Use
  Company Number: US-JNJFOC-20090703710

PATIENT
  Sex: Female

DRUGS (3)
  1. TOPAMAX [Suspect]
     Indication: MIGRAINE PROPHYLAXIS
  2. COUMADIN [Interacting]
     Indication: PULMONARY THROMBOSIS
     Route: 065
  3. INTERFERON BETA-1B [Suspect]
     Indication: MULTIPLE SCLEROSIS
     Route: 058

REACTIONS (7)
  - ASTHENIA [None]
  - BLOOD URINE PRESENT [None]
  - DRUG INTERACTION [None]
  - INJECTION SITE REACTION [None]
  - MALAISE [None]
  - PROTHROMBIN TIME PROLONGED [None]
  - VAGINAL HAEMORRHAGE [None]
